FAERS Safety Report 6287845-0 (Version None)
Quarter: 2009Q3

REPORT INFORMATION
  Report Type: 
  Country: None (occurrence: None)
  Receive Date: 20090729
  Receipt Date: 20071130
  Transmission Date: 20100115
  Serious: Yes (Other)
  Sender: FDA-Public Use
  Company Number: US-ASTRAZENECA-2006UW26599

PATIENT
  Age: 18172 Day
  Sex: Male
  Weight: 94.2 kg

DRUGS (12)
  1. SEROQUEL [Suspect]
     Indication: BIPOLAR DISORDER
     Dosage: 100MG - 200MG
     Route: 048
     Dates: start: 20031211
  2. SEROQUEL [Suspect]
     Indication: DEPRESSION
     Dosage: 100MG - 200MG
     Route: 048
     Dates: start: 20031211
  3. SEROQUEL [Suspect]
     Route: 048
  4. SEROQUEL [Suspect]
     Route: 048
  5. ALTACE [Concomitant]
     Dosage: 2.5MG - 10MG
     Dates: start: 20020311
  6. EFFEXOR XR [Concomitant]
     Dosage: 75MG -225MG
     Dates: start: 20001013
  7. WELLBUTRIN SR [Concomitant]
     Dosage: 150MG - 300MG
     Dates: start: 20021126
  8. XANAX [Concomitant]
     Dosage: 0.5MG - 2 MG
     Dates: start: 20010202
  9. ACTOS [Concomitant]
     Dosage: 30MG - 45MG
     Dates: start: 20021202
  10. RISPERDAL [Concomitant]
     Dates: start: 20060313
  11. RANITIDINE [Concomitant]
     Dates: start: 20020120
  12. GEMFIBROZIL [Concomitant]
     Dates: start: 20021203

REACTIONS (9)
  - BLOOD GLUCOSE FLUCTUATION [None]
  - DIABETES MELLITUS [None]
  - DIABETES MELLITUS INADEQUATE CONTROL [None]
  - DIABETIC COMA [None]
  - DIABETIC KETOACIDOSIS [None]
  - DIABETIC NEUROPATHY [None]
  - DIABETIC RETINOPATHY [None]
  - HYPERGLYCAEMIA [None]
  - HYPOGLYCAEMIA [None]
